FAERS Safety Report 7985239-0 (Version None)
Quarter: 2011Q4

REPORT INFORMATION
  Report Type: 
  Country: None (occurrence: None)
  Receive Date: 20111216
  Receipt Date: 20100906
  Transmission Date: 20120403
  Serious: Yes (Death)
  Sender: FDA-Public Use
  Company Number: PHHY2010NL59097

PATIENT
  Age: 82 Year
  Sex: Male

DRUGS (1)
  1. TOBI [Suspect]
     Indication: BRONCHIECTASIS

REACTIONS (1)
  - DEATH [None]
